FAERS Safety Report 16755431 (Version 1)
Quarter: 2019Q3

REPORT INFORMATION
  Report Type: Spontaneous
  Country: None (occurrence: CA)
  Receive Date: 20190829
  Receipt Date: 20190829
  Transmission Date: 20191005
  Serious: Yes (Other)
  Sender: FDA-Public Use
  Company Number: CA-MERZ NORTH AMERICA, INC.-19MRZ-00337

PATIENT

DRUGS (11)
  1. CODEINE [Suspect]
     Active Substance: CODEINE
     Indication: PAIN
  2. OXYCONTIN [Suspect]
     Active Substance: OXYCODONE HYDROCHLORIDE
     Indication: PAIN
  3. CAFFEINE. [Suspect]
     Active Substance: CAFFEINE
     Indication: PAIN
  4. CELEBREX [Suspect]
     Active Substance: CELECOXIB
     Indication: PAIN
  5. CESAMET [Suspect]
     Active Substance: NABILONE
     Indication: PAIN
     Dosage: 2 CAPSULES DAILY
  6. XEOMIN [Suspect]
     Active Substance: INCOBOTULINUMTOXINA
     Indication: PAIN
     Dosage: UNKNOWN
  7. AMITRIPTYLINE [Suspect]
     Active Substance: AMITRIPTYLINE
     Indication: PRODUCT USED FOR UNKNOWN INDICATION
  8. TEGRETOL [Suspect]
     Active Substance: CARBAMAZEPINE
     Indication: PAIN
  9. TORADOLIN [Suspect]
     Active Substance: KETOROLAC TROMETHAMINE
     Indication: PAIN
  10. FENTANYL. [Suspect]
     Active Substance: FENTANYL
     Indication: PAIN
  11. HYDROMORPHONE HYDROCHLORIDE. [Suspect]
     Active Substance: HYDROMORPHONE HYDROCHLORIDE
     Indication: PAIN

REACTIONS (2)
  - Off label use [Unknown]
  - Drug dependence [Unknown]
